FAERS Safety Report 20576520 (Version 2)
Quarter: 2022Q1

REPORT INFORMATION
  Report Type: Spontaneous
  Country: CA (occurrence: CA)
  Receive Date: 20220310
  Receipt Date: 20220314
  Transmission Date: 20220423
  Serious: Yes (Other)
  Sender: FDA-Public Use
  Company Number: CA-BAUSCH-BL-2022-006259

PATIENT
  Age: 32 Year
  Sex: Female

DRUGS (22)
  1. DEXAMETHASONE [Suspect]
     Active Substance: DEXAMETHASONE
     Indication: Angiocentric lymphoma
     Dosage: DAYS 1-4 WITH G-CSF SUPPORT; VIPD PROTOCOL
     Route: 065
     Dates: start: 201902, end: 2019
  2. DEXAMETHASONE [Suspect]
     Active Substance: DEXAMETHASONE
     Dosage: ON DAYS 2-4; SMILE PROTOCOL
     Route: 065
     Dates: start: 201909, end: 2019
  3. ETOPOSIDE [Suspect]
     Active Substance: ETOPOSIDE
     Indication: Angiocentric lymphoma
     Dosage: INTRAVENOUS INFUSION, DAYS 1-3; VIPD PROTOCOL
     Route: 042
     Dates: start: 201902, end: 2019
  4. ETOPOSIDE [Suspect]
     Active Substance: ETOPOSIDE
     Dosage: INTRAVENOUS INFUSION, ON DAYS 2-4; SMILE PROTOCOL
     Route: 042
     Dates: start: 201909, end: 2019
  5. ETOPOSIDE [Suspect]
     Active Substance: ETOPOSIDE
     Dosage: INTRAVENOUS INFUSION, ON DAYS 2-4; SMILE PROTOCOL
     Route: 042
     Dates: start: 201908, end: 2019
  6. LEUCOVORIN [Suspect]
     Active Substance: LEUCOVORIN
     Indication: Angiocentric lymphoma
     Dosage: INTRAVENOUS INFUSION ON DAYS 2-4; SMILE PROTOCOL
     Route: 042
     Dates: start: 201909, end: 2019
  7. LEUCOVORIN [Suspect]
     Active Substance: LEUCOVORIN
     Dosage: INTRAVENOUS INFUSION ON DAYS 2-4; SMILE PROTOCOL
     Route: 042
     Dates: start: 201908, end: 2019
  8. ASPARAGINASE [Suspect]
     Active Substance: ASPARAGINASE
     Indication: Angiocentric lymphoma
     Dosage: 6000 U/M2, ON DAYS 8, 10, 12, 14, 16, 18, AND 20; SMILE PROTOCOL
     Route: 030
     Dates: start: 201909, end: 2019
  9. ASPARAGINASE [Suspect]
     Active Substance: ASPARAGINASE
     Dosage: 6000 U/M2, ON DAYS 8, 10, 12, 14, 16, 18, AND 20; SMILE PROTOCOL
     Route: 030
     Dates: start: 201908, end: 2019
  10. METHOTREXATE [Suspect]
     Active Substance: METHOTREXATE
     Indication: Angiocentric lymphoma
     Dosage: 2 G/MG, ON DAY 1; SMILE PROTOCOL
     Route: 048
     Dates: start: 201909, end: 2019
  11. METHOTREXATE [Suspect]
     Active Substance: METHOTREXATE
     Dosage: 2 G/MG, ON DAY 1; SMILE PROTOCOL
     Route: 048
     Dates: start: 201908, end: 2019
  12. IFOSFAMIDE [Suspect]
     Active Substance: IFOSFAMIDE
     Indication: Angiocentric lymphoma
     Dosage: INTRAVENOUS INFUSION, DAYS 2-4; VIPD PROTOCOL
     Route: 042
     Dates: start: 201902, end: 2019
  13. IFOSFAMIDE [Suspect]
     Active Substance: IFOSFAMIDE
     Dosage: INTRAVENOUS INFUSION, DAYS 2-4; SMILE PROTOCOL
     Route: 042
     Dates: start: 201909, end: 2019
  14. IFOSFAMIDE [Suspect]
     Active Substance: IFOSFAMIDE
     Dosage: INTRAVENOUS INFUSION, DAYS 2-4; SMILE PROTOCOL
     Route: 042
     Dates: start: 201908, end: 2019
  15. MESNA [Suspect]
     Active Substance: MESNA
     Indication: Angiocentric lymphoma
     Dosage: GIVEN BEFORE IFOSFAMIDE; VIPD PROTOCOL
     Route: 042
     Dates: start: 201902, end: 2019
  16. MESNA [Suspect]
     Active Substance: MESNA
     Dosage: GIVEN 4 AND 8 HOURS AFTER INFUSION FOR 3 SUBSEQUENT DAYS, INTRAVENOUS INFUSION; VIPD PROTOCOL
     Route: 042
     Dates: start: 201902, end: 2019
  17. MESNA [Suspect]
     Active Substance: MESNA
     Dosage: INTRAVENOUS INFUSION, ONCE DAILY, ON DAYS 2-4; SMILE PROTOCOL
     Route: 042
     Dates: start: 201909, end: 2019
  18. CISPLATIN [Suspect]
     Active Substance: CISPLATIN
     Indication: Angiocentric lymphoma
     Dosage: INTRAVENOUS INFUSION, WEEKLY; VIPD PROTOCOL
     Route: 042
     Dates: start: 201902, end: 2019
  19. BRENTUXIMAB VEDOTIN [Suspect]
     Active Substance: BRENTUXIMAB VEDOTIN
     Indication: Monoclonal antibody unconjugated therapy
     Dosage: SMILE PROTOCOL
     Route: 065
     Dates: start: 201910, end: 2019
  20. GRANULOCYTE COLONY-STIMULATING FACTOR NOS [Suspect]
     Active Substance: GRANULOCYTE COLONY-STIMULATING FACTOR NOS
     Indication: Angiocentric lymphoma
     Dosage: VIPD PROTOCOL
     Route: 065
     Dates: start: 201908, end: 2019
  21. GRANULOCYTE COLONY-STIMULATING FACTOR NOS [Suspect]
     Active Substance: GRANULOCYTE COLONY-STIMULATING FACTOR NOS
     Dosage: DAY 6, SMILE PROTOCOL
     Route: 065
     Dates: start: 201909, end: 2019
  22. PREDNISONE [Concomitant]
     Active Substance: PREDNISONE
     Indication: Product used for unknown indication

REACTIONS (3)
  - Neutropenia [Unknown]
  - Thrombocytopenia [Unknown]
  - Therapy non-responder [Unknown]

NARRATIVE: CASE EVENT DATE: 20190101
